FAERS Safety Report 7617069-3 (Version None)
Quarter: 2011Q3

REPORT INFORMATION
  Report Type: 
  Country: None (occurrence: None)
  Receive Date: 20110718
  Receipt Date: 20110705
  Transmission Date: 20111222
  Serious: No
  Sender: FDA-Public Use
  Company Number: US-ELI_LILLY_AND_COMPANY-US201007007131

PATIENT
  Sex: Female

DRUGS (2)
  1. FORTEO [Suspect]
     Indication: OSTEOPOROSIS
     Dosage: 20 UG, DAILY (1/D)
     Dates: start: 20100708
  2. DARVOCET [Concomitant]
     Indication: ARTHRALGIA

REACTIONS (5)
  - CONSTIPATION [None]
  - PAIN [None]
  - GAIT DISTURBANCE [None]
  - DYSSTASIA [None]
  - SPINAL COMPRESSION FRACTURE [None]
